FAERS Safety Report 21642298 (Version 9)
Quarter: 2023Q1

REPORT INFORMATION
  Report Type: Spontaneous
  Country: CA (occurrence: CA)
  Receive Date: 20221125
  Receipt Date: 20230307
  Transmission Date: 20230418
  Serious: Yes (Other)
  Sender: FDA-Public Use
  Company Number: CA-CELLTRION INC.-2022CA018843

PATIENT

DRUGS (4)
  1. INFLECTRA [Suspect]
     Active Substance: INFLIXIMAB-DYYB
     Indication: Crohn^s disease
     Dosage: 600 MG (WEEK 0 DOSE - RECEIVED IN HOSPITAL)
     Route: 042
     Dates: start: 20221025, end: 20221025
  2. INFLECTRA [Suspect]
     Active Substance: INFLIXIMAB-DYYB
     Indication: Crohn^s disease
     Dosage: 400 MG, WEEK 2 AND 6- THEN EVERY 8 WEEKS
     Route: 042
     Dates: start: 20221109
  3. INFLECTRA [Suspect]
     Active Substance: INFLIXIMAB-DYYB
     Dosage: 400 MG, WEEK 2 AND 6 - THEN EVERY 8 WEEKS
     Route: 042
     Dates: start: 20221207
  4. INFLECTRA [Suspect]
     Active Substance: INFLIXIMAB-DYYB
     Dosage: 400 MG, EVERY 8 WEEKS
     Route: 042
     Dates: start: 20230224

REACTIONS (27)
  - Urethral fistula [Recovering/Resolving]
  - Cyst removal [Unknown]
  - Condition aggravated [Recovering/Resolving]
  - Off label use [Unknown]
  - Anal fistula [Unknown]
  - Fistula discharge [Recovering/Resolving]
  - Proctalgia [Recovering/Resolving]
  - Abscess [Unknown]
  - Weight increased [Not Recovered/Not Resolved]
  - Herpes zoster [Not Recovered/Not Resolved]
  - Pruritus [Unknown]
  - Fatigue [Not Recovered/Not Resolved]
  - Nausea [Unknown]
  - Joint stiffness [Unknown]
  - Back pain [Unknown]
  - Fall [Unknown]
  - Loss of personal independence in daily activities [Recovering/Resolving]
  - Lip scab [Unknown]
  - Cheilitis [Unknown]
  - Skin bacterial infection [Recovering/Resolving]
  - Productive cough [Not Recovered/Not Resolved]
  - Nasopharyngitis [Not Recovered/Not Resolved]
  - Sneezing [Not Recovered/Not Resolved]
  - Oropharyngeal pain [Not Recovered/Not Resolved]
  - Cough [Not Recovered/Not Resolved]
  - Anxiety [Unknown]
  - Rash [Unknown]

NARRATIVE: CASE EVENT DATE: 20220101
